FAERS Safety Report 12663307 (Version 1)
Quarter: 2016Q3

REPORT INFORMATION
  Report Type: Spontaneous
  Country: US (occurrence: None)
  Receive Date: 20160817
  Receipt Date: 20160817
  Transmission Date: 20161109
  Serious: Yes (Hospitalization)
  Sender: FDA-Public Use
  Company Number: None

PATIENT
  Age: 91 Year
  Sex: Female
  Weight: 86.18 kg

DRUGS (4)
  1. PRILOSIC [Concomitant]
  2. VITAMIN B12 [Concomitant]
     Active Substance: CYANOCOBALAMIN
  3. XARELTO [Suspect]
     Active Substance: RIVAROXABAN
     Indication: ATRIAL FIBRILLATION
     Route: 048
  4. BLOOD PRESSURE MED. [Concomitant]

REACTIONS (2)
  - Gastrointestinal haemorrhage [None]
  - Delayed haemolytic transfusion reaction [None]

NARRATIVE: CASE EVENT DATE: 20160627
